FAERS Safety Report 6137340-4 (Version None)
Quarter: 2009Q1

REPORT INFORMATION
  Report Type: 
  Country: None (occurrence: None)
  Receive Date: 20090330
  Receipt Date: 20090326
  Transmission Date: 20090719
  Serious: No
  Sender: FDA-Public Use
  Company Number: US-B.I. PHARMACEUTICALS,INC./RIDGEFIELD-2009-BP-02174BP

PATIENT
  Age: 82 Year
  Sex: Male

DRUGS (6)
  1. FLOMAX [Suspect]
     Indication: BENIGN PROSTATIC HYPERPLASIA
     Dosage: .4MG
     Route: 048
     Dates: start: 20040101
  2. FLOMAX [Suspect]
     Indication: PROSTATOMEGALY
  3. SIMVASTATIN [Concomitant]
  4. AMLODIPINE BESYLATE [Concomitant]
  5. LEVOTHYROXINE [Concomitant]
  6. FINASTERIDE [Concomitant]
     Indication: PROSTATIC DISORDER

REACTIONS (2)
  - CATARACT [None]
  - NOCTURIA [None]
